FAERS Safety Report 13291454 (Version 1)
Quarter: 2017Q1

REPORT INFORMATION
  Report Type: Spontaneous
  Country: US (occurrence: US)
  Receive Date: 20170302
  Receipt Date: 20170302
  Transmission Date: 20170428
  Serious: No
  Sender: FDA-Public Use
  Company Number: US-PERRIGO-16US019413

PATIENT
  Age: 41 Year
  Sex: Male
  Weight: 76.19 kg

DRUGS (3)
  1. CANASA [Concomitant]
     Active Substance: MESALAMINE
     Indication: COLITIS ULCERATIVE
     Dosage: UNK
     Route: 054
  2. IRON + VITAMIN C [Concomitant]
     Active Substance: ASCORBIC ACID\IRON
     Indication: SUPPLEMENTATION THERAPY
     Dosage: UNK
     Route: 065
  3. LOPERAMIDE HYDROCHLORIDE. [Suspect]
     Active Substance: LOPERAMIDE HYDROCHLORIDE
     Indication: COLITIS ULCERATIVE
     Dosage: 6 TO 12 MG, QD
     Route: 048
     Dates: start: 201606, end: 20160819

REACTIONS (4)
  - Headache [Recovering/Resolving]
  - Condition aggravated [Recovering/Resolving]
  - Off label use [Recovered/Resolved]
  - Overdose [Recovered/Resolved]

NARRATIVE: CASE EVENT DATE: 201606
